FAERS Safety Report 6698504-4 (Version None)
Quarter: 2010Q2

REPORT INFORMATION
  Report Type: 
  Country: None (occurrence: None)
  Receive Date: 20100426
  Receipt Date: 20100426
  Transmission Date: 20101027
  Serious: Yes (Death)
  Sender: FDA-Public Use
  Company Number: None

PATIENT
  Age: 74 Year
  Sex: Male
  Weight: 69.4003 kg

DRUGS (1)
  1. VALPROIC ACID [Suspect]
     Indication: AGITATION
     Dosage: 125 MG.AM+100MGNOON+250MGHS DAILEY PO
     Route: 048
     Dates: start: 20100304, end: 20100310

REACTIONS (11)
  - ATELECTASIS [None]
  - BLOOD URINE PRESENT [None]
  - CARDIAC ENZYMES INCREASED [None]
  - COMA [None]
  - DYSSTASIA [None]
  - HYPOPHAGIA [None]
  - PNEUMONIA ASPIRATION [None]
  - STUPOR [None]
  - UNRESPONSIVE TO STIMULI [None]
  - VOMITING [None]
  - WHEELCHAIR USER [None]
